FAERS Safety Report 26006375 (Version 3)
Quarter: 2025Q4

REPORT INFORMATION
  Report Type: Spontaneous
  Country: EU (occurrence: EU)
  Receive Date: 20251106
  Receipt Date: 20251125
  Transmission Date: 20260118
  Serious: Yes (Hospitalization)
  Sender: ALMUS
  Company Number: EU-ALMIRALL-PL-2025-3554

PATIENT
  Age: 63 Year
  Sex: Male
  Weight: 90 kg

DRUGS (1)
  1. KLISYRI [Suspect]
     Active Substance: TIRBANIBULIN
     Indication: Hyperkeratosis
     Route: 003

REACTIONS (4)
  - Headache [Unknown]
  - Pyrexia [Recovered/Resolved]
  - Asthenia [Unknown]
  - Product use issue [Unknown]
